FAERS Safety Report 4770951-7 (Version None)
Quarter: 2005Q3

REPORT INFORMATION
  Report Type: 
  Country: None (occurrence: None)
  Receive Date: 20050914
  Receipt Date: 20050830
  Transmission Date: 20060218
  Serious: Yes (Other)
  Sender: FDA-Public Use
  Company Number: JP_050907478

PATIENT
  Age: 54 Year
  Sex: Male

DRUGS (2)
  1. GEMZAR [Suspect]
     Indication: LUNG NEOPLASM MALIGNANT
  2. CARBOPLATIN [Concomitant]

REACTIONS (2)
  - RETINOPATHY [None]
  - VISUAL ACUITY REDUCED [None]
